FAERS Safety Report 8257381-0 (Version None)
Quarter: 2012Q2

REPORT INFORMATION
  Report Type: 
  Country: None (occurrence: None)
  Receive Date: 20120403
  Receipt Date: 20120329
  Transmission Date: 20120825
  Serious: Yes (Death, Life-Threatening, Other)
  Sender: FDA-Public Use
  Company Number: JP-PFIZER INC-2012061587

PATIENT
  Age: 68 Year
  Sex: Male
  Weight: 60 kg

DRUGS (15)
  1. MAGMITT [Concomitant]
     Indication: CONSTIPATION
     Dosage: 330 MG, 3X/DAY
     Route: 048
     Dates: start: 20111206, end: 20120207
  2. SENNOSIDE A+B [Concomitant]
     Indication: CONSTIPATION
     Dosage: 24 MG, 1X/DAY
     Route: 048
     Dates: start: 20120130
  3. OXINORM [Concomitant]
     Indication: CANCER PAIN
     Dosage: 5 MG, 1X/DAY
     Route: 048
     Dates: start: 20111207
  4. CATAPRES [Concomitant]
     Indication: HYPERTENSION
     Dosage: 75 UG, 3X/DAY
     Route: 048
     Dates: start: 20120203
  5. FENTANYL [Concomitant]
     Indication: CANCER PAIN
     Dosage: 2 MG, 1X/DAY
     Route: 062
     Dates: start: 20120109
  6. DOXAZOSIN MESYLATE [Concomitant]
     Indication: HYPERTENSION
     Dosage: 4 MG, 1X/DAY
     Route: 048
     Dates: start: 20111206
  7. HYPOCA [Concomitant]
     Indication: HYPERTENSION
     Dosage: 10 MG, 2X/DAY
     Route: 048
     Dates: start: 20120206
  8. SUTENT [Suspect]
     Dosage: 50 MG, 1X/DAY
     Route: 048
     Dates: start: 20120123, end: 20120205
  9. ADALAT CC [Concomitant]
     Indication: HYPERTENSION
     Dosage: 40 MG, 1X/DAY
     Route: 048
     Dates: start: 20111114
  10. OXYCONTIN [Concomitant]
     Indication: CANCER PAIN
     Dosage: 5 MG, 2X/DAY
     Dates: start: 20111205, end: 20120109
  11. SUTENT [Suspect]
     Indication: RENAL CELL CARCINOMA
     Dosage: 50 MG, 1X/DAY
     Route: 048
     Dates: start: 20111201, end: 20111215
  12. SUTENT [Suspect]
     Dosage: 37.5 MG, 1X/DAY
     Route: 048
     Dates: start: 20120206, end: 20120210
  13. OLMESARTAN MEDOXOMIL [Concomitant]
     Indication: HYPERTENSION
     Dosage: 20 MG, 2X/DAY
     Route: 048
     Dates: start: 20111116, end: 20120207
  14. LOXONIN [Concomitant]
     Indication: CANCER PAIN
     Dosage: 60 MG, 3X/DAY
     Route: 048
     Dates: start: 20111114, end: 20120116
  15. SELBEX [Concomitant]
     Indication: GASTRIC ULCER
     Dosage: 50 MG, 3X/DAY
     Route: 048
     Dates: start: 20111114, end: 20120116

REACTIONS (6)
  - ILEUS [None]
  - CEREBRAL HAEMORRHAGE [None]
  - STOMATITIS [None]
  - DISSEMINATED INTRAVASCULAR COAGULATION [None]
  - WHITE BLOOD CELL COUNT DECREASED [None]
  - CARDIOVASCULAR DISORDER [None]
